FAERS Safety Report 9100312 (Version 3)
Quarter: 2013Q2

REPORT INFORMATION
  Report Type: Report from Study
  Country: DE (occurrence: DE)
  Receive Date: 20130215
  Receipt Date: 20130508
  Transmission Date: 20140414
  Serious: Yes (Hospitalization)
  Sender: FDA-Public Use
  Company Number: DE-PFIZER INC-2012076583

PATIENT
  Age: 53 Year
  Sex: Female
  Weight: 82 kg

DRUGS (11)
  1. TOFACITINIB CITRATE [Suspect]
     Indication: RHEUMATOID ARTHRITIS
     Dosage: 10 MG, 2X/DAY
     Route: 048
     Dates: start: 20100929, end: 20120117
  2. METFORMIN HCL [Suspect]
     Indication: TYPE 2 DIABETES MELLITUS
     Dosage: 850 MG, 1X/DAY
     Route: 048
     Dates: start: 20070817
  3. METHOTREXATE SODIUM [Suspect]
     Indication: RHEUMATOID ARTHRITIS
     Dosage: 7.5 MG, WEEKLY
     Route: 048
     Dates: start: 20110923, end: 20120220
  4. CIPRAMIL [Suspect]
     Indication: DEPRESSION
     Dosage: 10 MG, 1X/DAY
     Route: 048
     Dates: start: 2006
  5. PROTHIPENDYL [Suspect]
     Indication: DEPRESSION
     Dosage: 40 MG, 1X/DAY
     Route: 048
     Dates: start: 2006, end: 20120220
  6. FOLIC ACID [Concomitant]
     Indication: PROPHYLAXIS
     Dosage: 5 MG, WEEKLY
     Route: 048
     Dates: start: 20071219, end: 20120328
  7. ENALAPRIL [Concomitant]
     Indication: HYPERTENSION
     Dosage: 10 MG, 1X/DAY
     Route: 048
     Dates: start: 1990, end: 20120220
  8. METOPROLOL [Concomitant]
     Indication: HYPERTENSION
     Dosage: 100 MG, 1X/DAY
     Route: 048
     Dates: start: 2005
  9. EPROSARTAN [Concomitant]
     Indication: HYPERTENSION
     Dosage: 600 MG, 1X/DAY
     Route: 048
     Dates: start: 200905, end: 20120220
  10. MESALAZINE [Concomitant]
     Indication: COLITIS ULCERATIVE
     Dosage: 500 MG, 3X/DAY
     Route: 048
     Dates: start: 20110914, end: 20120220
  11. OMEPRAZOL [Concomitant]
     Indication: COLITIS ULCERATIVE
     Dosage: 20 MG, 1X/DAY
     Route: 048
     Dates: start: 20101027

REACTIONS (1)
  - Colitis [Recovered/Resolved]
